FAERS Safety Report 7583427-9 (Version None)
Quarter: 2011Q2

REPORT INFORMATION
  Report Type: 
  Country: None (occurrence: None)
  Receive Date: 20110623
  Receipt Date: 20110608
  Transmission Date: 20111010
  Serious: Yes (Hospitalization, Other)
  Sender: FDA-Public Use
  Company Number: AMAG201100107

PATIENT
  Age: 70 Year
  Sex: Female
  Weight: 84.8 kg

DRUGS (13)
  1. BYETTA [Concomitant]
  2. FERAHEME [Suspect]
     Indication: ANAEMIA OF CHRONIC DISEASE
     Dosage: 510 MG, SINGLE, INTRAVENOUS
     Route: 042
     Dates: start: 20110412, end: 20110412
  3. FERAHEME [Suspect]
     Indication: IRON DEFICIENCY ANAEMIA
     Dosage: 510 MG, SINGLE, INTRAVENOUS
     Route: 042
     Dates: start: 20110412, end: 20110412
  4. INDOCIN [Suspect]
  5. LISINOPRIL (LISINOPRIL DIHYDRATE) [Concomitant]
  6. ORENCIA [Concomitant]
  7. QUIINE 9QUININE HYDROCHLORIDE) [Concomitant]
  8. INSULIN LANTUS(INSULIN GLARGINE) [Concomitant]
  9. HUMALOG [Concomitant]
  10. CYCLOBENZAPRINE [Concomitant]
  11. LASIX [Concomitant]
  12. ULTRAM [Concomitant]
  13. ASPIRIN [Concomitant]

REACTIONS (63)
  - RENAL FAILURE ACUTE [None]
  - THYROID MASS [None]
  - BLOOD CREATINE PHOSPHOKINASE INCREASED [None]
  - INTERNATIONAL NORMALISED RATIO INCREASED [None]
  - BLOOD PRESSURE SYSTOLIC INCREASED [None]
  - PYREXIA [None]
  - NAUSEA [None]
  - ATRIAL FIBRILLATION [None]
  - ANXIETY [None]
  - PNEUMONIA [None]
  - HYPOVOLAEMIA [None]
  - HAEMATEMESIS [None]
  - DIZZINESS [None]
  - CARDIAC MURMUR [None]
  - DECREASED APPETITE [None]
  - RENAL TUBULAR NECROSIS [None]
  - HYPOTENSION [None]
  - AORTIC ANEURYSM [None]
  - DYSPNOEA [None]
  - LEUKOCYTOSIS [None]
  - URINARY TRACT INFECTION ENTEROCOCCAL [None]
  - METABOLIC ACIDOSIS [None]
  - HYPONATRAEMIA [None]
  - COUGH [None]
  - TACHYCARDIA [None]
  - SOMNOLENCE [None]
  - ATELECTASIS [None]
  - PNEUMONIA BACTERIAL [None]
  - RESPIRATORY ACIDOSIS [None]
  - URINARY TRACT INFECTION FUNGAL [None]
  - PROTHROMBIN TIME PROLONGED [None]
  - ACTIVATED PARTIAL THROMBOPLASTIN TIME PROLONGED [None]
  - DEMENTIA [None]
  - MALAISE [None]
  - RESPIRATORY FAILURE [None]
  - ADRENAL MASS [None]
  - VOMITING [None]
  - URINARY RETENTION [None]
  - CARDIOMEGALY [None]
  - DEHYDRATION [None]
  - SEPTIC SHOCK [None]
  - LACTIC ACIDOSIS [None]
  - PLATELET COUNT INCREASED [None]
  - GAIT DISTURBANCE [None]
  - RHABDOMYOLYSIS [None]
  - HYPERGLYCAEMIA [None]
  - CONFUSIONAL STATE [None]
  - HYPERHIDROSIS [None]
  - THROMBOCYTOPENIA [None]
  - LEUKOPENIA [None]
  - BLOOD CALCIUM DECREASED [None]
  - ARTHROPOD BITE [None]
  - NORMOCHROMIC NORMOCYTIC ANAEMIA [None]
  - LETHARGY [None]
  - BLADDER PROLAPSE [None]
  - EPISTAXIS [None]
  - DIABETES MELLITUS INADEQUATE CONTROL [None]
  - PLEURAL EFFUSION [None]
  - ALANINE AMINOTRANSFERASE INCREASED [None]
  - ASPARTATE AMINOTRANSFERASE INCREASED [None]
  - HYPOXIA [None]
  - HAEMODIALYSIS [None]
  - FALL [None]
